FAERS Safety Report 16805730 (Version 1)
Quarter: 2019Q3

REPORT INFORMATION
  Report Type: Spontaneous
  Country: SE (occurrence: SE)
  Receive Date: 20190913
  Receipt Date: 20190913
  Transmission Date: 20191005
  Serious: Yes (Other)
  Sender: FDA-Public Use
  Company Number: SE-PFIZER INC-2012071708

PATIENT
  Age: 80 Year
  Sex: Female

DRUGS (4)
  1. FURIX [Concomitant]
  2. CARDIZEM [Suspect]
     Active Substance: DILTIAZEM HYDROCHLORIDE
     Indication: HYPERTENSION
     Dosage: 90 MG, 4X/DAY
     Dates: start: 1994, end: 1999
  3. DIOVAN [Concomitant]
     Active Substance: VALSARTAN
  4. AMILORIDE [Concomitant]
     Active Substance: AMILORIDE

REACTIONS (5)
  - Cardiac fibrillation [Unknown]
  - Infarction [Unknown]
  - Drug ineffective [Unknown]
  - Cerebrovascular accident [Unknown]
  - Breast cancer [Unknown]

NARRATIVE: CASE EVENT DATE: 2005
